FAERS Safety Report 5092557-5 (Version None)
Quarter: 2006Q3

REPORT INFORMATION
  Report Type: 
  Country: None (occurrence: None)
  Receive Date: 20060727
  Receipt Date: 20060619
  Transmission Date: 20061208
  Serious: Yes (Other)
  Sender: FDA-Public Use
  Company Number: 2006079017

PATIENT
  Age: 79 Year
  Sex: Male
  Weight: 78.0187 kg

DRUGS (6)
  1. LYRICA [Suspect]
     Indication: POST HERPETIC NEURALGIA
     Dosage: 75 MG (25 MG,3 IN 1 D),ORAL
     Route: 048
     Dates: start: 20060616
  2. FOLTX (CYANOCOBALAMIN, FOLIC ACID, PYRIDOXINE) [Concomitant]
  3. LIPITOR [Concomitant]
  4. PLAVIX [Concomitant]
  5. NORVASC [Concomitant]
  6. ALTACE [Concomitant]

REACTIONS (1)
  - DRUG INEFFECTIVE [None]
